FAERS Safety Report 5045559-9 (Version None)
Quarter: 2006Q3

REPORT INFORMATION
  Report Type: 
  Country: None (occurrence: None)
  Receive Date: 20060707
  Receipt Date: 20040818
  Transmission Date: 20061208
  Serious: Yes (Disabling)
  Sender: FDA-Public Use
  Company Number: US-ROCHE-378079

PATIENT
  Age: 34 Year
  Sex: Female
  Weight: 88.5 kg

DRUGS (1)
  1. ACCUTANE [Suspect]
     Indication: ACNE
     Route: 048
     Dates: start: 19930515, end: 19930615

REACTIONS (29)
  - ANXIETY [None]
  - ARTHROPATHY [None]
  - BACK PAIN [None]
  - BLEPHARITIS [None]
  - BLEPHAROSPASM [None]
  - BLOOD CHOLESTEROL INCREASED [None]
  - CANDIDIASIS [None]
  - CHRONIC FATIGUE SYNDROME [None]
  - COLITIS ULCERATIVE [None]
  - CYSTITIS [None]
  - DRUG EXPOSURE BEFORE PREGNANCY [None]
  - ELECTROCARDIOGRAM T WAVE ABNORMAL [None]
  - FIBROCYSTIC BREAST DISEASE [None]
  - FOOD INTOLERANCE [None]
  - FUNGAL INFECTION [None]
  - GASTROINTESTINAL DISORDER [None]
  - HYPERTENSION [None]
  - INFLAMMATORY BOWEL DISEASE [None]
  - INTESTINAL HAEMORRHAGE [None]
  - METAL POISONING [None]
  - OEDEMA PERIPHERAL [None]
  - OESOPHAGITIS [None]
  - OVARIAN CYST RUPTURED [None]
  - POSTNASAL DRIP [None]
  - RECTAL HAEMORRHAGE [None]
  - SCLERODERMA [None]
  - SINUS TACHYCARDIA [None]
  - TWIN PREGNANCY [None]
  - VULVOVAGINAL MYCOTIC INFECTION [None]
